FAERS Safety Report 5246463-3 (Version None)
Quarter: 2007Q1

REPORT INFORMATION
  Report Type: 
  Country: None (occurrence: None)
  Receive Date: 20070226
  Receipt Date: 20070215
  Transmission Date: 20070707
  Serious: Yes (Death)
  Sender: FDA-Public Use
  Company Number: HQWYE170120FEB07

PATIENT
  Age: 6 Month

DRUGS (3)
  1. EFFEXOR XR [Suspect]
     Indication: DEPRESSION
     Route: 063
     Dates: start: 20040101
  2. EFFEXOR XR [Suspect]
     Indication: ANXIETY
  3. KLONOPIN [Concomitant]
     Indication: ANXIETY
     Dosage: UNSPECIFIED DAILY THEN AS NEEDED THROUGHOUT PREGNANCY

REACTIONS (2)
  - DRUG EXPOSURE VIA BREAST MILK [None]
  - SUDDEN INFANT DEATH SYNDROME [None]
